FAERS Safety Report 17334569 (Version 3)
Quarter: 2020Q1

REPORT INFORMATION
  Report Type: Report from Study
  Country: US (occurrence: US)
  Receive Date: 20200128
  Receipt Date: 20200226
  Transmission Date: 20200409
  Serious: No
  Sender: FDA-Public Use
  Company Number: US-SAGE-2020SAGE000004

PATIENT

DRUGS (6)
  1. TRAZODONE HYDROCHLORIDE. [Concomitant]
     Active Substance: TRAZODONE HYDROCHLORIDE
     Indication: INSOMNIA
     Dosage: UNKNOWN, PRN
     Route: 065
  2. LORAZEPAM. [Concomitant]
     Active Substance: LORAZEPAM
     Indication: ANXIETY
     Dosage: UNKNOWN
     Route: 065
  3. ZOLOFT [Concomitant]
     Active Substance: SERTRALINE HYDROCHLORIDE
     Indication: PERINATAL DEPRESSION
     Dosage: 200, UNKNOWN
     Route: 065
  4. TRAZODONE HYDROCHLORIDE. [Concomitant]
     Active Substance: TRAZODONE HYDROCHLORIDE
     Indication: TRISMUS
  5. ZULRESSO [Suspect]
     Active Substance: BREXANOLONE
     Indication: PERINATAL DEPRESSION
     Dosage: 100MG/20ML SINGLE-DOSE VIAL
     Route: 042
     Dates: start: 20191210, end: 20191213
  6. WELLBUTRIN [Concomitant]
     Active Substance: BUPROPION HYDROCHLORIDE
     Indication: PERINATAL DEPRESSION
     Dosage: 300 MG UNKNOWN
     Route: 065

REACTIONS (5)
  - Tearfulness [Unknown]
  - Therapeutic response delayed [Unknown]
  - Feeling drunk [Recovered/Resolved]
  - Flatulence [Unknown]
  - Stress [Unknown]

NARRATIVE: CASE EVENT DATE: 201912
